FAERS Safety Report 14713114 (Version 3)
Quarter: 2018Q2

REPORT INFORMATION
  Report Type: Spontaneous
  Country: US (occurrence: US)
  Receive Date: 20180404
  Receipt Date: 20180427
  Transmission Date: 20180711
  Serious: Yes (Other)
  Sender: FDA-Public Use
  Company Number: US-PFIZER INC-2018133510

PATIENT
  Age: 30 Year
  Sex: Female
  Weight: 99.96 kg

DRUGS (1)
  1. BESPONSA [Suspect]
     Active Substance: INOTUZUMAB OZOGAMICIN
     Indication: ACUTE LYMPHOCYTIC LEUKAEMIA
     Dosage: 1.1 MG, WEEKLY (EVERY FRIDAY, ONCE A WEEK)
     Route: 041

REACTIONS (3)
  - Fluid retention [Not Recovered/Not Resolved]
  - Blood creatinine [Not Recovered/Not Resolved]
  - Product quality issue [Not Recovered/Not Resolved]
